FAERS Safety Report 5742100-X (Version None)
Quarter: 2008Q2

REPORT INFORMATION
  Report Type: 
  Country: None (occurrence: None)
  Receive Date: 20080519
  Receipt Date: 20080506
  Transmission Date: 20081010
  Serious: Yes (Other)
  Sender: FDA-Public Use
  Company Number: GB-MERCK-0805GBR00028

PATIENT
  Age: 65 Year
  Sex: Male
  Weight: 100 kg

DRUGS (5)
  1. ZOCOR [Suspect]
     Indication: HYPERCHOLESTEROLAEMIA
     Route: 048
     Dates: start: 20080222, end: 20080225
  2. AMLODIPINE BESYLATE [Concomitant]
     Route: 065
     Dates: start: 20050101
  3. AZATHIOPRINE [Concomitant]
     Indication: MUSCULAR WEAKNESS
     Route: 048
     Dates: start: 20070801
  4. PREDNISOLONE [Concomitant]
     Indication: MUSCULAR WEAKNESS
     Route: 048
     Dates: start: 20070301
  5. RAMIPRIL [Concomitant]
     Route: 065
     Dates: start: 20050101

REACTIONS (2)
  - CONDITION AGGRAVATED [None]
  - MUSCULAR WEAKNESS [None]
